FAERS Safety Report 6333135-7 (Version None)
Quarter: 2009Q3

REPORT INFORMATION
  Report Type: 
  Country: None (occurrence: None)
  Receive Date: 20090828
  Receipt Date: 20090824
  Transmission Date: 20100115
  Serious: Yes (Life-Threatening, Hospitalization)
  Sender: FDA-Public Use
  Company Number: JP-MERCK-0906USA05258

PATIENT
  Age: 78 Year
  Sex: Male

DRUGS (2)
  1. HYDRODIURIL [Suspect]
     Indication: HYPERTENSION
     Route: 048
     Dates: start: 20070501, end: 20070701
  2. HANGE-SHASHIN-TO [Suspect]
     Route: 048
     Dates: start: 19970101, end: 20070701

REACTIONS (4)
  - MYOPATHY [None]
  - PSEUDOALDOSTERONISM [None]
  - RESPIRATORY FAILURE [None]
  - RHABDOMYOLYSIS [None]
